FAERS Safety Report 6846973-9 (Version None)
Quarter: 2010Q3

REPORT INFORMATION
  Report Type: 
  Country: None (occurrence: None)
  Receive Date: 20100713
  Receipt Date: 20100628
  Transmission Date: 20110219
  Serious: Yes (Life-Threatening, Other)
  Sender: FDA-Public Use
  Company Number: 2010000561

PATIENT
  Age: 65 Year
  Sex: Male
  Weight: 58 kg

DRUGS (22)
  1. ERLOTINIB HYDROCHLORIDE [Suspect]
     Indication: LUNG ADENOCARCINOMA
     Dosage: 150 MG, QD, ORAL
     Route: 048
     Dates: start: 20090915, end: 20091011
  2. CIPROFLOXACIN [Suspect]
     Indication: PROPHYLAXIS
     Dosage: (300 MG QD), ORAL
     Route: 048
     Dates: start: 20090918, end: 20090919
  3. AMARYL [Suspect]
     Indication: DIABETES MELLITUS
     Dosage: (4 MG QD), ORAL
     Route: 048
     Dates: end: 20090927
  4. BASEN (VOGLIBOSE) [Suspect]
     Indication: DIABETES MELLITUS
     Dosage: (0.6 MG, QD), ORAL
     Route: 048
     Dates: end: 20090101
  5. OXINORM (ORGOTEIN) [Concomitant]
  6. OXYCONTIN [Concomitant]
  7. MUCODYNE (CARBOCISTEINE) [Concomitant]
  8. MUCOSOLVAN (AMBROXOL HYDROCHLORIDE) [Concomitant]
  9. TENORMIN [Concomitant]
  10. THEOPHYLLINE [Concomitant]
  11. LOXONIN (LOXOPROFEN SODIUM) [Concomitant]
  12. OMEPRAZOLE [Concomitant]
  13. KETOPROFEN [Concomitant]
  14. DICLOFENAC SODIUM [Concomitant]
  15. HOKUNALIN (TULOBUTEROL HYDROCHLORIDE) [Concomitant]
  16. SOL-MELCORT (METHYLPREDNISOLONE SODIUM SUCCINATE) [Concomitant]
  17. AMINOPHYLLINE [Concomitant]
  18. LASIX [Concomitant]
  19. ADSORBIN (ALUMINIUM SILICATE) [Concomitant]
  20. TANNALBIN (ALBUMIN TANNATE) [Concomitant]
  21. BIOFERMIN (BIOFERMIN) [Concomitant]
  22. BFLUID [Concomitant]

REACTIONS (8)
  - C-REACTIVE PROTEIN INCREASED [None]
  - DIARRHOEA [None]
  - HYPOGLYCAEMIA [None]
  - LUNG ADENOCARCINOMA [None]
  - MALIGNANT NEOPLASM PROGRESSION [None]
  - PNEUMONIA [None]
  - PYREXIA [None]
  - RASH [None]
